FAERS Safety Report 15856162 (Version 1)
Quarter: 2019Q1

REPORT INFORMATION
  Report Type: Spontaneous
  Country: US (occurrence: US)
  Receive Date: 20190123
  Receipt Date: 20190123
  Transmission Date: 20190417
  Serious: Yes (Other)
  Sender: FDA-Public Use
  Company Number: US-ROCHE-2249526

PATIENT
  Sex: Male

DRUGS (3)
  1. RITUXAN [Suspect]
     Active Substance: RITUXIMAB
     Indication: RHEUMATOID ARTHRITIS
     Dosage: FIRST COURSE: 2 X 1000MG ON DAYS 0 AND 14 WITH RETREATMENT ~6 MONTHS LATER
     Route: 065
  2. METHOTREXATE. [Concomitant]
     Active Substance: METHOTREXATE
  3. CYCLOSPORIN [Concomitant]
     Active Substance: CYCLOSPORINE

REACTIONS (2)
  - Rotator cuff syndrome [Unknown]
  - Rheumatoid arthritis [Unknown]
